FAERS Safety Report 6642099-8 (Version None)
Quarter: 2010Q1

REPORT INFORMATION
  Report Type: 
  Country: None (occurrence: None)
  Receive Date: 20100319
  Receipt Date: 20100309
  Transmission Date: 20100710
  Serious: Yes (Other)
  Sender: FDA-Public Use
  Company Number: CA-JNJFOC-20091001963

PATIENT
  Sex: Female
  Weight: 80 kg

DRUGS (16)
  1. REMICADE [Suspect]
     Indication: PSORIASIS
     Route: 042
  2. REMICADE [Suspect]
     Route: 042
  3. GLAXAL BASE [Concomitant]
     Route: 061
  4. APO-DILTIAZ [Concomitant]
     Route: 048
  5. PRAVASTATIN [Concomitant]
     Route: 048
  6. RATIO-SALBUTAMOL [Concomitant]
     Dosage: DOSE: 2X 100 UC
     Route: 055
  7. COVERSYL [Concomitant]
     Route: 048
  8. APO-CAL [Concomitant]
     Route: 048
  9. NOVOLIN GE NPH [Concomitant]
     Dosage: 14 UNITS AM AND PM
     Route: 058
  10. SYNTHROID [Concomitant]
     Route: 048
  11. ASAPHEN [Concomitant]
     Route: 048
  12. NOVO VENLAFAXINE [Concomitant]
     Route: 048
  13. PANTOPRAZOLE [Concomitant]
     Route: 048
  14. APO-CLONAZEPAM [Concomitant]
     Route: 048
  15. FLOVENT HFA [Concomitant]
     Route: 055
  16. EURO D [Concomitant]
     Route: 048

REACTIONS (1)
  - FEMALE REPRODUCTIVE NEOPLASM [None]
